FAERS Safety Report 20719677 (Version 7)
Quarter: 2022Q4

REPORT INFORMATION
  Report Type: Report from Study
  Country: FR (occurrence: FR)
  Receive Date: 20220418
  Receipt Date: 20221117
  Transmission Date: 20230113
  Serious: Yes (Death, Hospitalization, Other)
  Sender: FDA-Public Use
  Company Number: FR-TAKEDA-2022TUS024677

PATIENT
  Age: 54 Year
  Sex: Male
  Weight: 70 kg

DRUGS (9)
  1. MARIBAVIR [Suspect]
     Active Substance: MARIBAVIR
     Indication: Cytomegalovirus infection
     Dosage: UNK
     Route: 065
     Dates: start: 20220323, end: 20220325
  2. MARIBAVIR [Suspect]
     Active Substance: MARIBAVIR
     Dosage: 800 MILLIGRAM
     Route: 048
     Dates: start: 20220323, end: 20220401
  3. FOSCAVIR [Suspect]
     Active Substance: FOSCARNET SODIUM
     Indication: Product used for unknown indication
     Dosage: 80 MILLIGRAM/KILOGRAM, QD
     Route: 065
     Dates: start: 20220327, end: 20220503
  4. GANCICLOVIR [Suspect]
     Active Substance: GANCICLOVIR
     Indication: Product used for unknown indication
     Dosage: 5 MILLIGRAM, BID
     Route: 065
     Dates: start: 20220323, end: 20220325
  5. VALACYCLOVIR [Concomitant]
     Active Substance: VALACYCLOVIR HYDROCHLORIDE
     Indication: Prophylaxis
     Dosage: 500 MILLIGRAM, QD
     Route: 048
  6. BISOPROLOL [Concomitant]
     Active Substance: BISOPROLOL
     Dosage: 1.25 MILLIGRAM, QD
     Route: 048
     Dates: start: 2021
  7. LEVOTHYROXINE [Concomitant]
     Active Substance: LEVOTHYROXINE
     Dosage: 137 MILLIGRAM, QD
     Route: 048
     Dates: start: 2021
  8. PENICILLIN V [Concomitant]
     Active Substance: PENICILLIN V
     Dosage: UNK UNK, QOD
     Route: 048
     Dates: start: 2021
  9. ATOVAQUONE [Concomitant]
     Active Substance: ATOVAQUONE
     Dosage: 750 MILLIGRAM, QOD
     Route: 048
     Dates: start: 2021

REACTIONS (7)
  - Human herpesvirus 6 infection [Fatal]
  - Graft versus host disease in skin [Fatal]
  - COVID-19 [Unknown]
  - Cytomegalovirus infection [Unknown]
  - Drug eruption [Recovered/Resolved with Sequelae]
  - Dermatitis exfoliative generalised [Recovered/Resolved]
  - Skin reaction [Unknown]

NARRATIVE: CASE EVENT DATE: 20220301
